FAERS Safety Report 19130308 (Version 3)
Quarter: 2021Q3

REPORT INFORMATION
  Report Type: Spontaneous
  Country: JP (occurrence: JP)
  Receive Date: 20210413
  Receipt Date: 20210922
  Transmission Date: 20211014
  Serious: Yes (Death, Life-Threatening, Other)
  Sender: FDA-Public Use
  Company Number: JP-JAZZ-2021-JP-006505

PATIENT
  Age: 48 Year
  Sex: Male
  Weight: 87.6 kg

DRUGS (1)
  1. DEFITELIO [Suspect]
     Active Substance: DEFIBROTIDE SODIUM
     Indication: VENOOCCLUSIVE LIVER DISEASE
     Dosage: 25 MILLIGRAM/KILOGRAM, QD
     Route: 042
     Dates: start: 20210130, end: 20210405

REACTIONS (4)
  - Off label use [Unknown]
  - Septic shock [Fatal]
  - Multiple organ dysfunction syndrome [Unknown]
  - Hypotension [Not Recovered/Not Resolved]

NARRATIVE: CASE EVENT DATE: 20210130
